FAERS Safety Report 4604846-6 (Version None)
Quarter: 2005Q1

REPORT INFORMATION
  Report Type: 
  Country: None (occurrence: None)
  Receive Date: 20050311
  Receipt Date: 20040212
  Transmission Date: 20050727
  Serious: Yes (Hospitalization)
  Sender: FDA-Public Use
  Company Number: 200410466EU

PATIENT
  Age: 73 Year
  Sex: Male

DRUGS (6)
  1. DOCETAXEL [Suspect]
     Indication: PROSTATE CANCER
     Route: 042
     Dates: start: 20040130, end: 20040130
  2. RISEDRONATE SODIUM [Suspect]
     Indication: PROSTATE CANCER
     Route: 048
     Dates: start: 20040130
  3. PREDNISON [Suspect]
     Indication: PROSTATE CANCER
     Route: 048
     Dates: start: 20040130
  4. VERAPAMIL [Concomitant]
  5. ACENOCOUMAROL [Concomitant]
  6. LATANOPROST EYE DROP [Concomitant]
     Route: 047

REACTIONS (6)
  - FATIGUE [None]
  - FEBRILE NEUTROPENIA [None]
  - HEMIANOPIA [None]
  - LEUKOPENIA [None]
  - MALAISE [None]
  - TRANSIENT ISCHAEMIC ATTACK [None]
